FAERS Safety Report 16659715 (Version 1)
Quarter: 2019Q3

REPORT INFORMATION
  Report Type: Spontaneous
  Country: US (occurrence: US)
  Receive Date: 20190802
  Receipt Date: 20190802
  Transmission Date: 20191004
  Serious: Yes (Life-Threatening, Hospitalization, Other)
  Sender: FDA-Public Use
  Company Number: US-ACCORD-150007

PATIENT
  Age: 46 Year
  Sex: Male

DRUGS (2)
  1. TACROLIMUS. [Suspect]
     Active Substance: TACROLIMUS
     Indication: IMMUNOSUPPRESSANT DRUG THERAPY
  2. MYCOPHENOLIC ACID. [Suspect]
     Active Substance: MYCOPHENOLIC ACID
     Indication: IMMUNOSUPPRESSANT DRUG THERAPY

REACTIONS (5)
  - Renal impairment [Recovered/Resolved]
  - Histoplasmosis [Recovered/Resolved]
  - Acute respiratory distress syndrome [Recovered/Resolved]
  - Respiratory failure [Recovered/Resolved]
  - Haemophagocytic lymphohistiocytosis [Recovered/Resolved]
